FAERS Safety Report 20037716 (Version 2)
Quarter: 2022Q1

REPORT INFORMATION
  Report Type: Report from Study
  Country: BR (occurrence: BR)
  Receive Date: 20211105
  Receipt Date: 20220314
  Transmission Date: 20220423
  Serious: Yes (Other)
  Sender: FDA-Public Use
  Company Number: BR-NOVARTISPH-NVSC2021BR191278

PATIENT
  Age: 53 Year
  Sex: Female

DRUGS (5)
  1. KISQALI [Suspect]
     Active Substance: RIBOCICLIB
     Indication: Neoplasm malignant
     Dosage: UNK
     Route: 065
     Dates: start: 20201024
  2. KISQALI [Suspect]
     Active Substance: RIBOCICLIB
     Dosage: UNK (STOPPED AFTER 6 MONTHS)
     Route: 065
     Dates: start: 20201223, end: 202106
  3. EXEMESTANE [Concomitant]
     Active Substance: EXEMESTANE
     Indication: Neoplasm malignant
     Dosage: UNK
     Route: 065
  4. XGEVA [Concomitant]
     Active Substance: DENOSUMAB
     Indication: Hormone therapy
     Dosage: EVERY 28 DAYS
     Route: 065
  5. FASLODEX [Concomitant]
     Active Substance: FULVESTRANT
     Indication: Product used for unknown indication
     Dosage: UNK
     Route: 065
     Dates: end: 2020

REACTIONS (20)
  - Metastases to liver [Unknown]
  - Spinal fracture [Recovered/Resolved]
  - Immunodeficiency [Recovering/Resolving]
  - General physical health deterioration [Unknown]
  - Feeling abnormal [Recovered/Resolved]
  - Abdominal discomfort [Recovered/Resolved]
  - Hepatic mass [Unknown]
  - Affect lability [Unknown]
  - Paraesthesia oral [Unknown]
  - Illness [Unknown]
  - Gastrointestinal infection [Recovering/Resolving]
  - Vomiting [Recovering/Resolving]
  - Constipation [Recovered/Resolved]
  - Decreased appetite [Recovered/Resolved]
  - Headache [Recovering/Resolving]
  - Dry skin [Unknown]
  - Erythema [Unknown]
  - Diarrhoea [Recovering/Resolving]
  - Drug ineffective [Recovered/Resolved]
  - Drug ineffective [Unknown]

NARRATIVE: CASE EVENT DATE: 20201201
